FAERS Safety Report 24074471 (Version 3)
Quarter: 2024Q3

REPORT INFORMATION
  Report Type: Spontaneous
  Country: FR (occurrence: FR)
  Receive Date: 20240710
  Receipt Date: 20240801
  Transmission Date: 20241016
  Serious: Yes (Other)
  Sender: JOHNSON AND JOHNSON
  Company Number: FR-JNJFOC-20240712606

PATIENT
  Age: 45 Year
  Sex: Male

DRUGS (2)
  1. RYBREVANT [Suspect]
     Active Substance: AMIVANTAMAB-VMJW
     Indication: Product used for unknown indication
     Route: 065
     Dates: start: 20220715
  2. LAZERTINIB [Suspect]
     Active Substance: LAZERTINIB
     Indication: Product used for unknown indication
     Route: 048
     Dates: start: 20220715

REACTIONS (3)
  - Hepatic cytolysis [Unknown]
  - Dermatitis acneiform [Unknown]
  - Nail disorder [Unknown]

NARRATIVE: CASE EVENT DATE: 20221129
